FAERS Safety Report 8201876-2 (Version None)
Quarter: 2012Q1

REPORT INFORMATION
  Report Type: 
  Country: None (occurrence: None)
  Receive Date: 20120308
  Receipt Date: 20120228
  Transmission Date: 20120608
  Serious: Yes (Other)
  Sender: FDA-Public Use
  Company Number: AUR-APL-2012-01222

PATIENT
  Age: 72 Year
  Sex: Female

DRUGS (5)
  1. ENALAPRIL MALEATE [Concomitant]
  2. AMOXICILLIN [Suspect]
     Indication: URINARY TRACT INFECTION
     Dosage: 1 DOSAGE FORMS, TOTAL), ORAL
     Route: 048
     Dates: start: 20120214, end: 20120214
  3. DELORAZEPAM (DELORAZEPAM) [Concomitant]
  4. BISOPROLOL FUMARATE [Concomitant]
  5. CARDIOASPIRIN (ACETYSALICYLIC ACID) [Concomitant]

REACTIONS (1)
  - FACE OEDEMA [None]
